FAERS Safety Report 23599751 (Version 3)
Quarter: 2025Q2

REPORT INFORMATION
  Report Type: Spontaneous
  Country: US (occurrence: US)
  Receive Date: 20240306
  Receipt Date: 20250627
  Transmission Date: 20250717
  Serious: Yes (Other)
  Sender: AMGEN
  Company Number: US-AMGEN-USASP2024043551

PATIENT

DRUGS (3)
  1. CARFILZOMIB [Suspect]
     Active Substance: CARFILZOMIB
     Indication: Plasma cell myeloma refractory
     Route: 065
  2. MAGROLIMAB [Suspect]
     Active Substance: MAGROLIMAB
     Indication: Plasma cell myeloma refractory
     Route: 042
  3. DEXAMETHASONE [Suspect]
     Active Substance: DEXAMETHASONE
     Indication: Plasma cell myeloma refractory
     Route: 065

REACTIONS (21)
  - Adverse event [Unknown]
  - Neutrophil count decreased [Unknown]
  - Neutropenia [Unknown]
  - Anaemia [Unknown]
  - Infusion related reaction [Unknown]
  - Thrombocytopenia [Unknown]
  - Pneumonia [Unknown]
  - Headache [Unknown]
  - White blood cell count decreased [Unknown]
  - Lymphocyte count decreased [Unknown]
  - Insomnia [Unknown]
  - Muscle spasms [Unknown]
  - Contusion [Unknown]
  - Dyspnoea [Unknown]
  - Cough [Unknown]
  - Nausea [Unknown]
  - Oedema peripheral [Unknown]
  - Bronchitis [Unknown]
  - Diarrhoea [Unknown]
  - Blood creatinine increased [Unknown]
  - Fatigue [Unknown]
